FAERS Safety Report 13617884 (Version 1)
Quarter: 2017Q2

REPORT INFORMATION
  Report Type: Spontaneous
  Country: FR (occurrence: FR)
  Receive Date: 20170606
  Receipt Date: 20170606
  Transmission Date: 20170830
  Serious: Yes (Hospitalization)
  Sender: FDA-Public Use
  Company Number: FR-ASTRAZENECA-2017SE58759

PATIENT
  Age: 16256 Day
  Sex: Male

DRUGS (2)
  1. INEXIUM [Suspect]
     Active Substance: ESOMEPRAZOLE
     Indication: GASTRITIS PROPHYLAXIS
     Route: 048
     Dates: start: 20170320, end: 20170504
  2. BI-PROFENID [Suspect]
     Active Substance: KETOPROFEN
     Indication: INFLAMMATION
     Route: 048
     Dates: start: 20170320, end: 20170504

REACTIONS (4)
  - Rash [Recovering/Resolving]
  - Tonsillitis [Recovering/Resolving]
  - Agranulocytosis [Recovering/Resolving]
  - Pyrexia [Recovering/Resolving]

NARRATIVE: CASE EVENT DATE: 20170425
